FAERS Safety Report 6841363-7 (Version None)
Quarter: 2010Q3

REPORT INFORMATION
  Report Type: 
  Country: None (occurrence: None)
  Receive Date: 20100714
  Receipt Date: 20070926
  Transmission Date: 20110219
  Serious: No
  Sender: FDA-Public Use
  Company Number: US-PFIZER INC-2007052869

PATIENT
  Sex: Female
  Weight: 71.7 kg

DRUGS (7)
  1. CHANTIX [Suspect]
     Indication: SMOKING CESSATION THERAPY
     Dates: start: 20070619
  2. FENTANYL [Concomitant]
  3. PROTONIX [Concomitant]
  4. ACIPHEX [Concomitant]
  5. DICLOFENAC SODIUM [Concomitant]
  6. KLONOPIN [Concomitant]
  7. REQUIP [Concomitant]
     Dosage: DAILY

REACTIONS (6)
  - DRUG WITHDRAWAL SYNDROME [None]
  - DYSPNOEA [None]
  - NERVOUSNESS [None]
  - PRURITUS [None]
  - RASH [None]
  - TREMOR [None]
